FAERS Safety Report 5777985-4 (Version None)
Quarter: 2008Q2

REPORT INFORMATION
  Report Type: 
  Country: None (occurrence: None)
  Receive Date: 20080619
  Receipt Date: 20080612
  Transmission Date: 20081010
  Serious: Yes (Other)
  Sender: FDA-Public Use
  Company Number: US-TEVA-172803USA

PATIENT
  Sex: Female

DRUGS (14)
  1. CLOZAPINE [Suspect]
     Indication: SCHIZOAFFECTIVE DISORDER
     Route: 048
     Dates: start: 20031001, end: 20080601
  2. AZAPROPAZONE [Concomitant]
  3. BENZTROPINE MESYLATE [Concomitant]
  4. SERTRALINE [Concomitant]
  5. METFORMIN [Concomitant]
  6. GLYBURIDE [Concomitant]
  7. LEVOTHYROXINE SODIUM [Concomitant]
  8. PROVASTIN [Concomitant]
  9. ESOMEPRAZOLE MAGNESIUM [Concomitant]
  10. RANITIDINE [Concomitant]
  11. RANITIDINE [Concomitant]
  12. ASPIRIN [Concomitant]
  13. VITAMINS [Concomitant]
  14. SUPPLEMENTS (NOS) [Concomitant]

REACTIONS (1)
  - METASTASES TO BREAST [None]
